FAERS Safety Report 8572571-5 (Version None)
Quarter: 2012Q3

REPORT INFORMATION
  Report Type: 
  Country: None (occurrence: None)
  Receive Date: 20120806
  Receipt Date: 20120723
  Transmission Date: 20120928
  Serious: No
  Sender: FDA-Public Use
  Company Number: US-ASTRAZENECA-2010SE20970

PATIENT
  Age: 59 Year
  Sex: Male

DRUGS (2)
  1. RHINOCORT [Suspect]
     Route: 045
  2. CRESTOR [Suspect]
     Route: 048

REACTIONS (5)
  - MYALGIA [None]
  - DRUG DOSE OMISSION [None]
  - ADVERSE REACTION [None]
  - DYSPNOEA [None]
  - MUSCLE ENZYME INCREASED [None]
